FAERS Safety Report 16462586 (Version 3)
Quarter: 2020Q2

REPORT INFORMATION
  Report Type: Spontaneous
  Country: ZA (occurrence: ZA)
  Receive Date: 20190621
  Receipt Date: 20200406
  Transmission Date: 20200713
  Serious: Yes (Other)
  Sender: FDA-Public Use
  Company Number: ZA-SA-2018SA247056

PATIENT
  Age: 70 Year
  Sex: Male

DRUGS (3)
  1. CHLOROQUINE. [Suspect]
     Active Substance: CHLOROQUINE
     Dosage: 200 MG
     Dates: start: 2009, end: 2018
  2. METHOTREXATE. [Suspect]
     Active Substance: METHOTREXATE
     Dosage: 30 MG
     Dates: start: 2009
  3. ARAVA [Suspect]
     Active Substance: LEFLUNOMIDE
     Dosage: 20 MG
     Dates: start: 2011

REACTIONS (4)
  - Hypertension [Unknown]
  - Benign prostatic hyperplasia [Unknown]
  - Prostate cancer [Unknown]
  - Platelet count abnormal [Recovering/Resolving]

NARRATIVE: CASE EVENT DATE: 2010
